FAERS Safety Report 16989826 (Version 2)
Quarter: 2019Q4

REPORT INFORMATION
  Report Type: Report from Study
  Country: DE (occurrence: DE)
  Receive Date: 20191104
  Receipt Date: 20191126
  Transmission Date: 20200122
  Serious: Yes (Hospitalization, Other)
  Sender: FDA-Public Use
  Company Number: DE-ACTELION-A-CH2019-193906

PATIENT
  Age: 79 Year
  Sex: Male
  Weight: 85 kg

DRUGS (8)
  1. REVATIO [Concomitant]
     Active Substance: SILDENAFIL CITRATE
     Dosage: 60 MG, QD
     Route: 048
     Dates: start: 20171213
  2. NOVALGIN [Concomitant]
     Indication: PAIN
     Dosage: UNK
     Route: 048
     Dates: start: 201712
  3. OPSUMIT [Suspect]
     Active Substance: MACITENTAN
     Indication: PULMONARY ARTERIAL HYPERTENSION
     Dosage: 10 MG, QD
     Route: 048
     Dates: start: 20180919
  4. ASPIRIN. [Concomitant]
     Active Substance: ASPIRIN
     Indication: CORONARY ARTERY DISEASE
     Dosage: UNK
     Route: 048
  5. TORASEMID [Concomitant]
     Active Substance: TORSEMIDE
     Indication: DIURETIC THERAPY
     Dosage: UNK
     Route: 048
     Dates: start: 20171214
  6. RAMIPRIL. [Concomitant]
     Active Substance: RAMIPRIL
     Indication: HYPERTENSION
     Dosage: UNK
     Route: 048
  7. ATORVASTATIN [Concomitant]
     Active Substance: ATORVASTATIN
     Indication: HYPERLIPIDAEMIA
     Dosage: UNK
     Route: 048
  8. OMEPRAZOL [Concomitant]
     Active Substance: OMEPRAZOLE
     Indication: PROPHYLAXIS
     Dosage: UNK
     Route: 048

REACTIONS (10)
  - Atrial fibrillation [Recovered/Resolved]
  - Blood creatinine increased [Unknown]
  - Fibrin D dimer increased [Unknown]
  - Dyspnoea [Recovered/Resolved]
  - C-reactive protein increased [Unknown]
  - Right ventricular failure [Recovered/Resolved]
  - Brain natriuretic peptide increased [Unknown]
  - Anxiety [Not Recovered/Not Resolved]
  - Dyspnoea paroxysmal nocturnal [Not Recovered/Not Resolved]
  - Angina unstable [Recovered/Resolved]

NARRATIVE: CASE EVENT DATE: 201905
